FAERS Safety Report 9350664 (Version 1)
Quarter: 2013Q2

REPORT INFORMATION
  Report Type: Spontaneous
  Country: US (occurrence: None)
  Receive Date: 20130613
  Receipt Date: 20130613
  Transmission Date: 20140414
  Serious: Yes (Other)
  Sender: FDA-Public Use
  Company Number: None

PATIENT
  Age: 54 Year
  Sex: Female
  Weight: 86.18 kg

DRUGS (2)
  1. KENALOG [Suspect]
     Indication: PAIN MANAGEMENT
     Dosage: INTRALESIONAL
     Dates: start: 20121001, end: 20130131
  2. KENALOG [Suspect]
     Indication: NEURALGIA
     Dosage: INTRALESIONAL
     Dates: start: 20121001, end: 20130131

REACTIONS (4)
  - Injection site pain [None]
  - Injection site atrophy [None]
  - Neuralgia [None]
  - Injection site necrosis [None]
